FAERS Safety Report 9906987 (Version 2)
Quarter: 2014Q1

REPORT INFORMATION
  Report Type: Spontaneous
  Country: US (occurrence: US)
  Receive Date: 20140218
  Receipt Date: 20140218
  Transmission Date: 20141002
  Serious: Yes (Other)
  Sender: FDA-Public Use
  Company Number: US-GILEAD-2012-0053918

PATIENT
  Sex: Female

DRUGS (3)
  1. LETAIRIS [Suspect]
     Indication: PULMONARY HYPERTENSION
     Dosage: 10 UNK, UNK
     Route: 048
     Dates: start: 20120209
  2. LETAIRIS [Suspect]
     Dosage: 5 MG, UNK
     Route: 048
     Dates: start: 20120123
  3. LASIX                              /00032601/ [Concomitant]

REACTIONS (4)
  - No therapeutic response [Unknown]
  - No therapeutic response [Unknown]
  - Dyspnoea [Unknown]
  - Oedema [Unknown]
